FAERS Safety Report 19951694 (Version 1)
Quarter: 2021Q4

REPORT INFORMATION
  Report Type: Spontaneous
  Country: US (occurrence: US)
  Receive Date: 20211013
  Receipt Date: 20211013
  Transmission Date: 20220303
  Serious: No
  Sender: FDA-Public Use
  Company Number: US-BEH-2021136577

PATIENT
  Sex: Female

DRUGS (1)
  1. HIZENTRA [Suspect]
     Active Substance: HUMAN IMMUNOGLOBULIN G
     Indication: Behcet^s syndrome
     Dosage: 10 GRAM, QOW
     Route: 058
     Dates: start: 201909

REACTIONS (4)
  - Infusion site pruritus [Unknown]
  - Infusion site swelling [Unknown]
  - No adverse event [Unknown]
  - Off label use [Unknown]
